FAERS Safety Report 9004285 (Version 1)
Quarter: 2013Q1

REPORT INFORMATION
  Report Type: Spontaneous
  Country: AU (occurrence: AU)
  Receive Date: 20130108
  Receipt Date: 20130108
  Transmission Date: 20140127
  Serious: Yes (Other)
  Sender: FDA-Public Use
  Company Number: AU-ROCHE-1176492

PATIENT
  Sex: Female

DRUGS (11)
  1. HERCEPTIN [Suspect]
     Indication: BREAST CANCER
     Route: 065
     Dates: start: 201010, end: 201012
  2. HERCEPTIN [Suspect]
     Route: 065
     Dates: start: 201107, end: 201108
  3. HERCEPTIN [Suspect]
     Route: 065
     Dates: start: 201109, end: 201203
  4. HERCEPTIN [Suspect]
     Route: 065
     Dates: start: 201210
  5. CAPECITABINE [Suspect]
     Indication: BREAST CANCER
     Route: 065
     Dates: start: 201101, end: 201106
  6. TAXOL [Concomitant]
     Route: 065
     Dates: start: 201010, end: 201012
  7. LAPATINIB [Concomitant]
     Route: 065
     Dates: start: 201101, end: 201106
  8. VINORELBINE [Concomitant]
     Route: 065
     Dates: start: 201107, end: 201108
  9. DOXORUBICIN [Concomitant]
     Route: 065
     Dates: start: 201203, end: 201204
  10. CARBOPLATIN [Concomitant]
     Route: 065
     Dates: start: 201210
  11. GEMCITABINE [Concomitant]
     Route: 065
     Dates: start: 201109, end: 201203

REACTIONS (1)
  - Disease progression [Unknown]
